FAERS Safety Report 5244438-1 (Version None)
Quarter: 2007Q1

REPORT INFORMATION
  Report Type: 
  Country: None (occurrence: None)
  Receive Date: 20061201
  Receipt Date: 20060823
  Transmission Date: 20070707
  Serious: No
  Sender: FDA-Public Use
  Company Number: 2006PV020029

PATIENT
  Age: 53 Year
  Sex: Female
  Weight: 127.0072 kg

DRUGS (4)
  1. BYETTA [Suspect]
     Indication: DIABETES MELLITUS NON-INSULIN-DEPENDENT
     Dosage: 5 MCG;BID;SC
     Route: 058
     Dates: start: 20060822
  2. GLIPIZIDE ER [Concomitant]
  3. AVANDIA [Concomitant]
  4. METFORMIN [Concomitant]

REACTIONS (6)
  - ASTHENIA [None]
  - FEELING COLD [None]
  - FEELING HOT [None]
  - FLUSHING [None]
  - INSOMNIA [None]
  - NAUSEA [None]
